FAERS Safety Report 12011209 (Version 5)
Quarter: 2016Q4

REPORT INFORMATION
  Report Type: Spontaneous
  Country: GB (occurrence: GB)
  Receive Date: 20160205
  Receipt Date: 20161205
  Transmission Date: 20170206
  Serious: No
  Sender: FDA-Public Use
  Company Number: GB-JNJFOC-20160202016

PATIENT
  Sex: Female

DRUGS (1)
  1. SIMPONI [Suspect]
     Active Substance: GOLIMUMAB
     Indication: PRODUCT USED FOR UNKNOWN INDICATION
     Route: 058
     Dates: start: 20160127, end: 201602

REACTIONS (2)
  - Bronchitis [Recovering/Resolving]
  - Lower respiratory tract infection [Recovered/Resolved]

NARRATIVE: CASE EVENT DATE: 2016
